FAERS Safety Report 19470939 (Version 1)
Quarter: 2021Q2

REPORT INFORMATION
  Report Type: Spontaneous
  Country: US (occurrence: US)
  Receive Date: 20210629
  Receipt Date: 20210629
  Transmission Date: 20210717
  Serious: No
  Sender: FDA-Public Use
  Company Number: US-ALLERGAN-2117015US

PATIENT

DRUGS (1)
  1. DURYSTA [Suspect]
     Active Substance: BIMATOPROST
     Indication: PRODUCT USED FOR UNKNOWN INDICATION
     Dosage: 0.01 MG, SINGLE
     Route: 031

REACTIONS (3)
  - Intraocular pressure increased [Unknown]
  - Iris hyperpigmentation [Unknown]
  - Drug ineffective [Unknown]
